FAERS Safety Report 4838002-3 (Version None)
Quarter: 2005Q4

REPORT INFORMATION
  Report Type: 
  Country: None (occurrence: None)
  Receive Date: 20051128
  Receipt Date: 20051117
  Transmission Date: 20060501
  Serious: Yes (Other)
  Sender: FDA-Public Use
  Company Number: US-JNJFOC-20051104260

PATIENT
  Sex: Male
  Weight: 58.06 kg

DRUGS (4)
  1. REMICADE [Suspect]
     Indication: CROHN'S DISEASE
     Route: 042
  2. PRILOSEC [Concomitant]
  3. VITAMINS [Concomitant]
  4. CALCIUM GLUCONATE [Concomitant]

REACTIONS (3)
  - ANTINUCLEAR ANTIBODY POSITIVE [None]
  - JOINT SWELLING [None]
  - LUPUS-LIKE SYNDROME [None]
